FAERS Safety Report 21322424 (Version 1)
Quarter: 2022Q3

REPORT INFORMATION
  Report Type: Spontaneous
  Country: US (occurrence: None)
  Receive Date: 20220911
  Receipt Date: 20220911
  Transmission Date: 20221027
  Serious: Yes (Death)
  Sender: FDA-Public Use
  Company Number: None

PATIENT
  Age: 63 Year
  Sex: Male
  Weight: 75.75 kg

DRUGS (16)
  1. TAFINLAR [Suspect]
     Active Substance: DABRAFENIB MESYLATE
     Indication: Chronic lymphocytic leukaemia
     Dosage: FREQUENCY : TWICE A DAY;?
     Route: 048
     Dates: start: 20220309
  2. MEKINIST [Suspect]
     Active Substance: TRAMETINIB DIMETHYL SULFOXIDE
     Indication: Chronic lymphocytic leukaemia
     Dosage: FREQUENCY : ONCE;?
     Route: 048
     Dates: start: 20220309
  3. ALLOPURINOL [Concomitant]
     Active Substance: ALLOPURINOL
  4. ONDANSETRON [Concomitant]
     Active Substance: ONDANSETRON
  5. AMLODIPINE [Concomitant]
     Active Substance: AMLODIPINE BESYLATE
  6. ATENOLOL [Concomitant]
     Active Substance: ATENOLOL
  7. ATORVASTATIN [Concomitant]
     Active Substance: ATORVASTATIN
  8. LISINOPRIL [Concomitant]
     Active Substance: LISINOPRIL
  9. ALPRAZOLAM [Concomitant]
     Active Substance: ALPRAZOLAM
  10. NYSTATIN [Concomitant]
     Active Substance: NYSTATIN
  11. RETACRIT [Concomitant]
     Active Substance: EPOETIN ALFA-EPBX
  12. SENNA [Concomitant]
     Active Substance: SENNA LEAF\SENNOSIDES\SENNOSIDES A AND B
  13. FERROUS SULFATE [Concomitant]
     Active Substance: FERROUS SULFATE
  14. LEVETIRACETAM [Concomitant]
     Active Substance: LEVETIRACETAM
  15. LISINOPRIL AND HYDROCHLOROTHIAZIDE [Concomitant]
     Active Substance: HYDROCHLOROTHIAZIDE\LISINOPRIL
  16. KEYTRUDA [Concomitant]
     Active Substance: PEMBROLIZUMAB

REACTIONS (1)
  - Death [None]

NARRATIVE: CASE EVENT DATE: 20220910
